FAERS Safety Report 11374917 (Version 1)
Quarter: 2015Q3

REPORT INFORMATION
  Report Type: Spontaneous
  Country: GB (occurrence: GB)
  Receive Date: 20150813
  Receipt Date: 20150813
  Transmission Date: 20151125
  Serious: Yes (Other)
  Sender: FDA-Public Use
  Company Number: GB-TEVA-583781ACC

PATIENT
  Age: 40 Year
  Sex: Male
  Weight: 116.2 kg

DRUGS (5)
  1. FULTIUM-D3 [Concomitant]
     Indication: VITAMIN D DEFICIENCY
     Dates: start: 20150306
  2. SIMVASTATIN. [Concomitant]
     Active Substance: SIMVASTATIN
     Indication: HYPERCHOLESTEROLAEMIA
     Dosage: 20 MILLIGRAM DAILY;
     Route: 048
  3. SERTRALINE [Interacting]
     Active Substance: SERTRALINE HYDROCHLORIDE
     Indication: APATHY
  4. ZAPONEX [Interacting]
     Active Substance: CLOZAPINE
     Dosage: 500 MILLIGRAM DAILY;
     Route: 048
     Dates: start: 20120712
  5. SERTRALINE [Suspect]
     Active Substance: SERTRALINE HYDROCHLORIDE
     Indication: DEPRESSED MOOD
     Dosage: 100 MILLIGRAM DAILY;
     Route: 048
     Dates: start: 20150428

REACTIONS (3)
  - Antipsychotic drug level increased [Unknown]
  - Drug interaction [Unknown]
  - Platelet count decreased [Not Recovered/Not Resolved]

NARRATIVE: CASE EVENT DATE: 20141203
